FAERS Safety Report 8115507-3 (Version None)
Quarter: 2012Q1

REPORT INFORMATION
  Report Type: 
  Country: None (occurrence: None)
  Receive Date: 20120206
  Receipt Date: 20120202
  Transmission Date: 20120608
  Serious: No
  Sender: FDA-Public Use
  Company Number: US-PFIZER INC-2011314642

PATIENT
  Sex: Male

DRUGS (1)
  1. SUTENT [Suspect]
     Indication: RENAL CANCER
     Dosage: 50 MG, 1X/DAY
     Dates: start: 20111208

REACTIONS (10)
  - ARTHRALGIA [None]
  - DECREASED APPETITE [None]
  - VOMITING [None]
  - HEADACHE [None]
  - FATIGUE [None]
  - NAUSEA [None]
  - AGEUSIA [None]
  - DIARRHOEA [None]
  - ASTHENIA [None]
  - NASOPHARYNGITIS [None]
